FAERS Safety Report 5704461-7 (Version None)
Quarter: 2008Q2

REPORT INFORMATION
  Report Type: 
  Country: None (occurrence: None)
  Receive Date: 20080414
  Receipt Date: 20080407
  Transmission Date: 20081010
  Serious: Yes (Hospitalization)
  Sender: FDA-Public Use
  Company Number: US-MERCK-0804USA02175

PATIENT
  Age: 51 Year
  Sex: Female

DRUGS (10)
  1. DECADRON [Suspect]
     Indication: MULTIPLE MYELOMA
     Route: 048
  2. REVLIMID [Suspect]
     Indication: MULTIPLE MYELOMA
     Route: 048
     Dates: start: 20070809, end: 20071226
  3. TOPROL-XL [Concomitant]
     Route: 048
  4. TOPROL-XL [Concomitant]
     Route: 048
  5. ASPIRIN [Concomitant]
     Route: 065
  6. BACTRIM DS [Concomitant]
     Route: 065
  7. IBUPROFEN [Concomitant]
     Route: 065
  8. PROTONIX [Concomitant]
     Route: 065
  9. PREDNISONE [Concomitant]
     Route: 065
  10. VICODIN [Concomitant]
     Route: 065

REACTIONS (2)
  - CHEST PAIN [None]
  - PNEUMONIA [None]
